FAERS Safety Report 24561361 (Version 2)
Quarter: 2024Q4

REPORT INFORMATION
  Report Type: Spontaneous
  Country: US (occurrence: US)
  Receive Date: 20241029
  Receipt Date: 20241105
  Transmission Date: 20250114
  Serious: No
  Sender: PFIZER
  Company Number: US-PFIZER INC-PV202400138357

PATIENT
  Age: 82 Year
  Sex: Female
  Weight: 49.44 kg

DRUGS (3)
  1. NURTEC ODT [Suspect]
     Active Substance: RIMEGEPANT SULFATE
     Indication: Hypnic headache
     Dosage: EVERY OTHER NIGHT BEFORE SLEEP
     Dates: start: 20241018
  2. SYNTHROID [Concomitant]
     Active Substance: LEVOTHYROXINE SODIUM
     Indication: Thyroid disorder
     Dosage: IN THE MORNING (DURING THE WEEK 77MG, THEN FOR 3 DAYS ON FRIDAY, SATURDAY AND SUNDAY DOES 88MG)
  3. LIPITOR [Concomitant]
     Active Substance: ATORVASTATIN CALCIUM
     Dosage: 10MG AT NIGHT

REACTIONS (4)
  - Facial pain [Unknown]
  - Trigeminal neuralgia [Unknown]
  - Drug ineffective for unapproved indication [Unknown]
  - Off label use [Unknown]

NARRATIVE: CASE EVENT DATE: 20241001
